FAERS Safety Report 22343809 (Version 2)
Quarter: 2023Q2

REPORT INFORMATION
  Report Type: Report from Study
  Country: US (occurrence: US)
  Receive Date: 20230519
  Receipt Date: 20230523
  Transmission Date: 20230721
  Serious: Yes (Other)
  Sender: FDA-Public Use
  Company Number: US-UCBSA-2023025077

PATIENT
  Sex: Female

DRUGS (3)
  1. FINTEPLA [Suspect]
     Active Substance: FENFLURAMINE
     Indication: Lennox-Gastaut syndrome
     Dosage: 6 MILLILITER, 2X/DAY (BID)
     Route: 048
     Dates: start: 202211
  2. FINTEPLA [Suspect]
     Active Substance: FENFLURAMINE
     Dosage: 0.3 MILLIGRAM, ONCE DAILY (QD)
     Dates: start: 20221202
  3. FINTEPLA [Suspect]
     Active Substance: FENFLURAMINE
     Dosage: 26.4 MILLIGRAM, ONCE DAILY (QD)
     Dates: start: 20221202

REACTIONS (1)
  - Tricuspid valve incompetence [Not Recovered/Not Resolved]
